FAERS Safety Report 25067608 (Version 1)
Quarter: 2025Q1

REPORT INFORMATION
  Report Type: Spontaneous
  Country: US (occurrence: None)
  Receive Date: 20250311
  Receipt Date: 20250311
  Transmission Date: 20250408
  Serious: Yes (Other)
  Sender: FDA-CTU
  Company Number: None

PATIENT
  Age: 50 Year
  Sex: Female
  Weight: 82.8 kg

DRUGS (3)
  1. CETIRIZINE HYDROCHLORIDE [Suspect]
     Active Substance: CETIRIZINE HYDROCHLORIDE
     Indication: Multiple allergies
     Dosage: FREQUENCY : DAILY;?
     Route: 048
     Dates: start: 20100101, end: 20241219
  2. VITAMINS [Concomitant]
     Active Substance: VITAMINS
     Dates: start: 20000101, end: 20250311
  3. ZOLOFT [Concomitant]
     Active Substance: SERTRALINE HYDROCHLORIDE
     Dates: start: 20210101, end: 20250311

REACTIONS (5)
  - Therapy interrupted [None]
  - Pruritus [None]
  - Pruritus [None]
  - Urticaria [None]
  - Drug withdrawal syndrome [None]

NARRATIVE: CASE EVENT DATE: 20241221
